FAERS Safety Report 8956207 (Version 1)
Quarter: 2012Q4

REPORT INFORMATION
  Report Type: 
  Country: US (occurrence: US)
  Receive Date: 20121210
  Receipt Date: 20121210
  Transmission Date: 20130627
  Serious: Yes (Other)
  Sender: FDA-Public Use
  Company Number: US-PFIZER INC-2012310075

PATIENT
  Age: 48 Year
  Sex: Female
  Weight: 142 kg

DRUGS (2)
  1. CHANTIX [Suspect]
     Indication: SMOKING CESSATION THERAPY
     Dosage: UNK
     Dates: start: 2007, end: 2007
  2. IBUPROFEN [Concomitant]
     Indication: KNEE ARTHRITIS
     Dosage: 400 mg, as needed

REACTIONS (1)
  - Breast cancer female [Recovered/Resolved]
